FAERS Safety Report 21003068 (Version 1)
Quarter: 2022Q2

REPORT INFORMATION
  Report Type: Spontaneous
  Country: US (occurrence: None)
  Receive Date: 20220623
  Receipt Date: 20220623
  Transmission Date: 20220721
  Serious: Yes (Hospitalization)
  Sender: FDA-Public Use
  Company Number: None

PATIENT
  Age: 43 Year

DRUGS (3)
  1. XELJANZ XR [Suspect]
     Active Substance: TOFACITINIB CITRATE
     Indication: Juvenile idiopathic arthritis
     Route: 048
     Dates: start: 20210224
  2. NAPROXEN [Concomitant]
     Active Substance: NAPROXEN
  3. XELJANZ XR [Concomitant]

REACTIONS (3)
  - Infection [None]
  - Therapy interrupted [None]
  - Arthritis [None]

NARRATIVE: CASE EVENT DATE: 20220601
